FAERS Safety Report 25436560 (Version 1)
Quarter: 2025Q2

REPORT INFORMATION
  Report Type: Spontaneous
  Country: US (occurrence: US)
  Receive Date: 20250614
  Receipt Date: 20250614
  Transmission Date: 20250716
  Serious: Yes (Hospitalization)
  Sender: NOVITIUM PHARMA
  Company Number: US-NOVITIUMPHARMA-2025USNVP01354

PATIENT
  Age: 32 Year
  Sex: Male

DRUGS (12)
  1. CARBAMAZEPINE [Suspect]
     Active Substance: CARBAMAZEPINE
     Indication: Product used for unknown indication
  2. RISPERIDONE [Concomitant]
     Active Substance: RISPERIDONE
     Indication: Product used for unknown indication
  3. ZIPRASIDONE [Concomitant]
     Active Substance: ZIPRASIDONE
     Indication: Product used for unknown indication
  4. DIVALPROEX SODIUM [Concomitant]
     Active Substance: DIVALPROEX SODIUM
     Indication: Product used for unknown indication
  5. PALIPERIDONE [Concomitant]
     Active Substance: PALIPERIDONE
     Indication: Product used for unknown indication
  6. CHLORPROMAZINE [Concomitant]
     Active Substance: CHLORPROMAZINE
     Indication: Product used for unknown indication
  7. OLANZAPINE [Concomitant]
     Active Substance: OLANZAPINE
     Indication: Psychotic disorder
     Route: 048
  8. OLANZAPINE [Concomitant]
     Active Substance: OLANZAPINE
     Indication: Agitation
     Route: 030
  9. HALOPERIDOL [Concomitant]
     Active Substance: HALOPERIDOL
     Indication: Product used for unknown indication
  10. FLUPHENAZINE [Concomitant]
     Active Substance: FLUPHENAZINE
     Indication: Product used for unknown indication
  11. ASENAPINE [Concomitant]
     Active Substance: ASENAPINE
     Indication: Agitation
     Route: 060
  12. ASENAPINE [Concomitant]
     Active Substance: ASENAPINE

REACTIONS (1)
  - Treatment noncompliance [Unknown]
